FAERS Safety Report 13359996 (Version 1)
Quarter: 2017Q1

REPORT INFORMATION
  Report Type: Report from Study
  Country: US (occurrence: US)
  Receive Date: 20170322
  Receipt Date: 20170322
  Transmission Date: 20170429
  Serious: Yes (Death, Hospitalization, Other)
  Sender: FDA-Public Use
  Company Number: PHHO2017US001763

PATIENT
  Sex: Male
  Weight: 94.3 kg

DRUGS (3)
  1. MEKINIST [Suspect]
     Active Substance: TRAMETINIB DIMETHYL SULFOXIDE
     Indication: PLASMA CELL MYELOMA
     Dosage: 32 MG, UNK
     Route: 048
     Dates: start: 20150409, end: 20150424
  2. MEKINIST [Suspect]
     Active Substance: TRAMETINIB DIMETHYL SULFOXIDE
     Dosage: 9 MG, UNK
     Route: 048
     Dates: start: 20150507, end: 20150512
  3. GSK2141795 [Suspect]
     Active Substance: UPROSERTIB
     Indication: PLASMA CELL MYELOMA
     Dosage: 300 MG, UNK
     Route: 048
     Dates: start: 20150507, end: 20150512

REACTIONS (8)
  - Confusional state [Unknown]
  - Hypoalbuminaemia [Unknown]
  - Hypoalbuminaemia [Unknown]
  - Pyrexia [Unknown]
  - Epistaxis [Unknown]
  - Delirium [Unknown]
  - Hallucination [Unknown]
  - Disease progression [Fatal]

NARRATIVE: CASE EVENT DATE: 20150418
